FAERS Safety Report 19845739 (Version 5)
Quarter: 2022Q3

REPORT INFORMATION
  Report Type: Spontaneous
  Country: JP (occurrence: JP)
  Receive Date: 20210917
  Receipt Date: 20220714
  Transmission Date: 20221027
  Serious: Yes (Hospitalization, Other)
  Sender: FDA-Public Use
  Company Number: JP-GSKNCCC-CASE-01304023_AE-49449

PATIENT

DRUGS (3)
  1. SERETIDE [Suspect]
     Active Substance: FLUTICASONE PROPIONATE\SALMETEROL XINAFOATE
     Dosage: 2 INHALATIONS PER DOSE, QD
  2. BUFFERIN COMBINATION TABLET A81 [Concomitant]
     Indication: Angina pectoris
     Dosage: 81 MG
  3. BUFFERIN COMBINATION TABLET A81 [Concomitant]
     Dosage: 81 MG
     Dates: start: 20211005

REACTIONS (2)
  - Cerebral infarction [Recovered/Resolved]
  - Product use issue [Unknown]

NARRATIVE: CASE EVENT DATE: 20210913
